FAERS Safety Report 10572757 (Version 2)
Quarter: 2014Q4

REPORT INFORMATION
  Report Type: Spontaneous
  Country: CA (occurrence: CA)
  Receive Date: 20141110
  Receipt Date: 20141110
  Transmission Date: 20150529
  Serious: Yes (Other)
  Sender: FDA-Public Use
  Company Number: CA-009507513-1406CAN013516

PATIENT
  Sex: Male

DRUGS (8)
  1. VIAGRA [Concomitant]
     Active Substance: SILDENAFIL CITRATE
     Route: 065
  2. PEGASYS [Suspect]
     Active Substance: PEGINTERFERON ALFA-2A
     Indication: CHRONIC HEPATITIS C
     Dosage: 180 MICROGRAM, QW, 180 MICROGRAM, QW, 180 MCG/0.5 PRE-FILLED SYRINGE
     Route: 058
     Dates: start: 20140522, end: 2014
  3. SOFLAX (DOCUSATE SODIUM) [Concomitant]
     Dosage: UNK
  4. INDOMETHACIN. [Concomitant]
     Active Substance: INDOMETHACIN
     Dosage: UNK
     Route: 065
  5. MORPHINE [Concomitant]
     Active Substance: MORPHINE
  6. GABAPENTIN. [Concomitant]
     Active Substance: GABAPENTIN
  7. VICTRELIS [Suspect]
     Active Substance: BOCEPREVIR
     Indication: CHRONIC HEPATITIS C
     Dosage: 800 MG, TID
     Route: 048
     Dates: start: 20140619, end: 2014
  8. COPEGUS [Suspect]
     Active Substance: RIBAVIRIN
     Indication: CHRONIC HEPATITIS C
     Dosage: 1200 MG, QD, 42 TABLET/WEEK
     Route: 048
     Dates: start: 20140522, end: 2014

REACTIONS (4)
  - Testis cancer [Unknown]
  - Abdominal pain upper [Unknown]
  - Nausea [Unknown]
  - Insomnia [Unknown]

NARRATIVE: CASE EVENT DATE: 2014
